FAERS Safety Report 17583198 (Version 2)
Quarter: 2020Q2

REPORT INFORMATION
  Report Type: Report from Study
  Country: None (occurrence: US)
  Receive Date: 20200326
  Receipt Date: 20200524
  Transmission Date: 20200713
  Serious: Yes (Other)
  Sender: FDA-Public Use
  Company Number: US-ABBVIE-20K-163-3325429-00

PATIENT
  Age: 45 Year
  Sex: Female
  Weight: 75.36 kg

DRUGS (3)
  1. HUMIRA [Suspect]
     Active Substance: ADALIMUMAB
     Indication: COLITIS ULCERATIVE
     Route: 058
  2. SULFANILAMIDE [Suspect]
     Active Substance: SULFANILAMIDE
     Indication: PRODUCT USED FOR UNKNOWN INDICATION
     Route: 065
  3. AMLODIPINE BESILATE [Concomitant]
     Active Substance: AMLODIPINE BESYLATE
     Indication: HYPERTENSION

REACTIONS (8)
  - Musculoskeletal chest pain [Not Recovered/Not Resolved]
  - Abscess [Not Recovered/Not Resolved]
  - Ear infection [Recovered/Resolved]
  - Dry throat [Not Recovered/Not Resolved]
  - Sinusitis [Recovered/Resolved]
  - Lethargy [Not Recovered/Not Resolved]
  - Abscess drainage [Not Recovered/Not Resolved]
  - Drug hypersensitivity [Not Recovered/Not Resolved]

NARRATIVE: CASE EVENT DATE: 202001
